FAERS Safety Report 9387442 (Version 4)
Quarter: 2013Q3

REPORT INFORMATION
  Report Type: Spontaneous
  Country: FR (occurrence: FR)
  Receive Date: 20130708
  Receipt Date: 20130923
  Transmission Date: 20140515
  Serious: Yes (Other)
  Sender: FDA-Public Use
  Company Number: FR-ALEXION PHARMACEUTICALS INC.-A201301521

PATIENT
  Sex: Female

DRUGS (1)
  1. SOLIRIS 300MG [Suspect]
     Indication: PAROXYSMAL NOCTURNAL HAEMOGLOBINURIA
     Dosage: 900 MG, Q2W
     Route: 042
     Dates: start: 201201

REACTIONS (6)
  - Anaemia [Recovering/Resolving]
  - Depressed mood [Unknown]
  - Dyspnoea [Not Recovered/Not Resolved]
  - Transfusion related complication [Unknown]
  - Blood lactate dehydrogenase increased [Unknown]
  - Fatigue [Not Recovered/Not Resolved]
